FAERS Safety Report 8553295-7 (Version None)
Quarter: 2012Q3

REPORT INFORMATION
  Report Type: 
  Country: None (occurrence: None)
  Receive Date: 20120731
  Receipt Date: 20120725
  Transmission Date: 20120928
  Serious: Yes (Other)
  Sender: FDA-Public Use
  Company Number: US-PFIZER INC-2012173428

PATIENT
  Sex: Female
  Weight: 71.202 kg

DRUGS (7)
  1. DIFLUCAN [Suspect]
     Indication: CANDIDIASIS
  2. DIFLUCAN [Suspect]
     Dosage: 150 MG, UNK
     Route: 048
  3. CLINDAMYCIN PHOSPHATE [Suspect]
     Indication: FUNGAL INFECTION
     Dosage: UNK
  4. DIFLUCAN [Suspect]
  5. DIFLUCAN [Suspect]
     Indication: FUNGAL INFECTION
     Dosage: UNK
     Route: 042
  6. DIFLUCAN [Suspect]
     Dosage: UNK
     Dates: end: 20120101
  7. CLINDAMYCIN PHOSPHATE [Suspect]
     Indication: CANDIDIASIS

REACTIONS (3)
  - CANDIDIASIS [None]
  - DISCOMFORT [None]
  - PAIN [None]
